FAERS Safety Report 5722534-X (Version None)
Quarter: 2008Q2

REPORT INFORMATION
  Report Type: 
  Country: None (occurrence: None)
  Receive Date: 20080429
  Receipt Date: 20070628
  Transmission Date: 20081010
  Serious: No
  Sender: FDA-Public Use
  Company Number: US-ASTRAZENECA-2007UW15406

PATIENT
  Age: 82 Year
  Sex: Female
  Weight: 43.5 kg

DRUGS (8)
  1. NEXIUM [Suspect]
     Indication: GASTROOESOPHAGEAL REFLUX DISEASE
     Route: 048
     Dates: start: 20070201
  2. INDERAL [Concomitant]
  3. AMLODIPINE [Concomitant]
  4. CALTRATE [Concomitant]
  5. COZAAR [Concomitant]
  6. PREDNISONE [Concomitant]
  7. CENTRUM SILVER [Concomitant]
  8. ASPIRIN [Concomitant]

REACTIONS (4)
  - ACCIDENTAL OVERDOSE [None]
  - EAR DISCOMFORT [None]
  - REFLUX OESOPHAGITIS [None]
  - THROAT IRRITATION [None]
